FAERS Safety Report 20628938 (Version 1)
Quarter: 2022Q1

REPORT INFORMATION
  Report Type: Spontaneous
  Country: US (occurrence: None)
  Receive Date: 20220323
  Receipt Date: 20220323
  Transmission Date: 20220423
  Serious: No
  Sender: FDA-Public Use
  Company Number: None

PATIENT
  Age: 3 Year
  Sex: Female
  Weight: 15.75 kg

DRUGS (3)
  1. SUPREP BOWEL PREP [Suspect]
     Active Substance: MAGNESIUM SULFATE\POTASSIUM SULFATE\SODIUM SULFATE
     Indication: Colonoscopy
     Dosage: OTHER QUANTITY : 1 KIT;?
     Route: 048
     Dates: start: 20220306, end: 20220307
  2. Mother also took bisacodyl [Concomitant]
  3. simethicone as part of colonoscopy prep [Concomitant]

REACTIONS (5)
  - Exposure via breast milk [None]
  - Anal incontinence [None]
  - Faeces soft [None]
  - Emotional distress [None]
  - Fear [None]

NARRATIVE: CASE EVENT DATE: 20220307
